FAERS Safety Report 20029702 (Version 2)
Quarter: 2021Q4

REPORT INFORMATION
  Report Type: Spontaneous
  Country: DE (occurrence: DE)
  Receive Date: 20211103
  Receipt Date: 20211115
  Transmission Date: 20220303
  Serious: Yes (Other)
  Sender: FDA-Public Use
  Company Number: DE-TEVA-2021-DE-1972673

PATIENT
  Age: 46 Year
  Sex: Female
  Weight: 45 kg

DRUGS (4)
  1. ERLOTINIB [Suspect]
     Active Substance: ERLOTINIB
     Indication: Vulval cancer
     Route: 048
  2. PANTOPRAZOLE SODIUM [Concomitant]
     Active Substance: PANTOPRAZOLE SODIUM
     Indication: Prophylaxis
     Dosage: DOSE: 40 MG
     Route: 048
  3. Novalgin [Concomitant]
     Indication: Pain prophylaxis
     Dosage: DOSE: 3X30 DROPS
     Route: 048
  4. PREGABALIN [Concomitant]
     Active Substance: PREGABALIN
     Indication: Pain prophylaxis
     Dosage: DOSE: 50 MG
     Route: 048

REACTIONS (4)
  - Diarrhoea [Recovered/Resolved]
  - Clostridium difficile infection [Recovered/Resolved]
  - Hepatic enzyme increased [Recovered/Resolved]
  - Skin fissures [Recovered/Resolved]

NARRATIVE: CASE EVENT DATE: 20130201
